FAERS Safety Report 8253965-4 (Version None)
Quarter: 2012Q2

REPORT INFORMATION
  Report Type: 
  Country: None (occurrence: None)
  Receive Date: 20120402
  Receipt Date: 20120319
  Transmission Date: 20120825
  Serious: No
  Sender: FDA-Public Use
  Company Number: US-AMGEN-USASP2012017564

PATIENT
  Age: 42 Year
  Sex: Female

DRUGS (1)
  1. ENBREL [Suspect]
     Indication: RHEUMATOID ARTHRITIS
     Dosage: 50 MG, QWK
     Dates: start: 20120309, end: 20120309

REACTIONS (11)
  - HYPERHIDROSIS [None]
  - DECREASED APPETITE [None]
  - AGEUSIA [None]
  - PARANASAL SINUS HYPERSECRETION [None]
  - ANOSMIA [None]
  - PRODUCTIVE COUGH [None]
  - SNEEZING [None]
  - PYREXIA [None]
  - FATIGUE [None]
  - SOMNOLENCE [None]
  - NASAL CONGESTION [None]
